FAERS Safety Report 8576176-1 (Version None)
Quarter: 2012Q3

REPORT INFORMATION
  Report Type: 
  Country: None (occurrence: None)
  Receive Date: 20120807
  Receipt Date: 20120803
  Transmission Date: 20120928
  Serious: Yes (Other)
  Sender: FDA-Public Use
  Company Number: JP-PFIZER INC-2012189577

PATIENT
  Age: 62 Year
  Sex: Male

DRUGS (2)
  1. EPLERENONE [Suspect]
     Route: 048
  2. WARFARIN [Concomitant]

REACTIONS (1)
  - RETINAL HAEMORRHAGE [None]
